FAERS Safety Report 6591952-2 (Version None)
Quarter: 2010Q1

REPORT INFORMATION
  Report Type: 
  Country: None (occurrence: None)
  Receive Date: 20100221
  Receipt Date: 20091118
  Transmission Date: 20100710
  Serious: No
  Sender: FDA-Public Use
  Company Number: US-ALLERGAN-0911476US

PATIENT
  Age: 59 Year
  Sex: Female

DRUGS (1)
  1. BOTOX COSMETIC [Suspect]
     Indication: SKIN WRINKLING
     Dosage: 2.6 ML, UNK
     Dates: start: 20090804, end: 20090804

REACTIONS (1)
  - EYELID PTOSIS [None]
